FAERS Safety Report 9157736 (Version 1)
Quarter: 2013Q1

REPORT INFORMATION
  Report Type: Spontaneous
  Country: US (occurrence: US)
  Receive Date: 20130312
  Receipt Date: 20130312
  Transmission Date: 20140127
  Serious: No
  Sender: FDA-Public Use
  Company Number: US-009507513-1303USA005526

PATIENT
  Age: 60 Year
  Sex: Male
  Weight: 104.31 kg

DRUGS (5)
  1. CLARITIN-D 24 HOUR [Suspect]
     Indication: NASOPHARYNGITIS
     Dosage: 10 MG, BID
     Route: 048
     Dates: start: 20130218
  2. GLYBURIDE [Concomitant]
     Indication: PRODUCT USED FOR UNKNOWN INDICATION
     Dosage: UNK, UNKNOWN
  3. METFORMIN [Concomitant]
     Indication: PRODUCT USED FOR UNKNOWN INDICATION
     Dosage: UNK, UNKNOWN
  4. ASPIRIN [Concomitant]
     Indication: PRODUCT USED FOR UNKNOWN INDICATION
     Dosage: UNK, UNKNOWN
  5. ACTOS [Concomitant]
     Indication: PRODUCT USED FOR UNKNOWN INDICATION
     Dosage: UNK, BID

REACTIONS (1)
  - Overdose [Not Recovered/Not Resolved]
